FAERS Safety Report 4595625-7 (Version None)
Quarter: 2005Q1

REPORT INFORMATION
  Report Type: 
  Country: None (occurrence: None)
  Receive Date: 20050224
  Receipt Date: 20050209
  Transmission Date: 20050727
  Serious: Yes (Life-Threatening, Hospitalization)
  Sender: FDA-Public Use
  Company Number: 2005-UK-00218UK

PATIENT
  Age: 57 Year
  Sex: Female

DRUGS (5)
  1. ATROVENT [Suspect]
     Indication: DYSPNOEA
     Dosage: 500 MCG FOUR TIMES DAILY (FOUR TIMES DAILY), IH
     Route: 055
     Dates: start: 20050201, end: 20050202
  2. UNIPHYLLINE [Concomitant]
  3. SERETIDE [Concomitant]
  4. SALBUTAMOL (SALBUTAMOL) [Concomitant]
  5. PREDNISOLONE [Concomitant]

REACTIONS (3)
  - CONDITION AGGRAVATED [None]
  - DYSPNOEA [None]
  - WHEEZING [None]
